FAERS Safety Report 20232921 (Version 3)
Quarter: 2022Q1

REPORT INFORMATION
  Report Type: Report from Study
  Country: US (occurrence: US)
  Receive Date: 20211227
  Receipt Date: 20220324
  Transmission Date: 20220423
  Serious: Yes (Other)
  Sender: FDA-Public Use
  Company Number: US-APELLIS-01003

PATIENT
  Age: 77 Year
  Sex: Male
  Weight: 67.585 kg

DRUGS (8)
  1. EMPAVELI [Suspect]
     Active Substance: PEGCETACOPLAN
     Indication: Paroxysmal nocturnal haemoglobinuria
     Route: 058
     Dates: start: 20210930
  2. EMPAVELI [Suspect]
     Active Substance: PEGCETACOPLAN
     Indication: Paroxysmal nocturnal haemoglobinuria
     Route: 058
     Dates: start: 20210830
  3. EMPAVELI [Suspect]
     Active Substance: PEGCETACOPLAN
     Indication: Paroxysmal nocturnal haemoglobinuria
     Route: 058
  4. EMPAVELI [Suspect]
     Active Substance: PEGCETACOPLAN
     Indication: Paroxysmal nocturnal haemoglobinuria
     Route: 058
     Dates: start: 20210909
  5. 1854371 (GLOBALC3Sep21): Losartan Potassium [Concomitant]
     Indication: Product used for unknown indication
  6. 3169843 (GLOBALC3Sep21): Tamsulosin [Concomitant]
     Indication: Product used for unknown indication
  7. 1325608 (GLOBALC3Sep21): Folic acid [Concomitant]
     Indication: Product used for unknown indication
  8. 1258595 (GLOBALC3Sep21): Penicillin VK [Concomitant]
     Indication: Product used for unknown indication

REACTIONS (10)
  - Back pain [Unknown]
  - Aphthous ulcer [Recovering/Resolving]
  - Pain [Recovering/Resolving]
  - Urticaria [Recovered/Resolved]
  - Arterial disorder [Unknown]
  - Photopsia [Unknown]
  - Dizziness [Unknown]
  - Vertigo [Unknown]
  - COVID-19 [Recovering/Resolving]
  - Contusion [Unknown]

NARRATIVE: CASE EVENT DATE: 20211010
